FAERS Safety Report 12433186 (Version 1)
Quarter: 2016Q2

REPORT INFORMATION
  Report Type: Spontaneous
  Country: US (occurrence: US)
  Receive Date: 20160603
  Receipt Date: 20160603
  Transmission Date: 20160815
  Serious: Yes (Death)
  Sender: FDA-Public Use
  Company Number: US-TEVA-663595USA

PATIENT
  Sex: Male

DRUGS (2)
  1. GRANIX [Suspect]
     Active Substance: TBO-FILGRASTIM
     Indication: VOMITING
  2. GRANIX [Suspect]
     Active Substance: TBO-FILGRASTIM
     Indication: NAUSEA
     Route: 065

REACTIONS (1)
  - Death [Fatal]
